FAERS Safety Report 24007818 (Version 1)
Quarter: 2024Q2

REPORT INFORMATION
  Report Type: Spontaneous
  Country: JP (occurrence: JP)
  Receive Date: 20240625
  Receipt Date: 20240625
  Transmission Date: 20240715
  Serious: No
  Sender: FDA-Public Use
  Company Number: JP-WT-2024-02190

PATIENT
  Sex: Male

DRUGS (3)
  1. LUNESTA [Suspect]
     Active Substance: ESZOPICLONE
     Indication: Insomnia
     Route: 065
  2. DAYVIGO [Suspect]
     Active Substance: LEMBOREXANT
     Indication: Insomnia
     Route: 048
  3. BROTIZOLAM [Suspect]
     Active Substance: BROTIZOLAM
     Indication: Insomnia

REACTIONS (1)
  - Drug ineffective [Unknown]
